FAERS Safety Report 24924015 (Version 1)
Quarter: 2025Q1

REPORT INFORMATION
  Report Type: Spontaneous
  Country: US (occurrence: US)
  Receive Date: 20250204
  Receipt Date: 20250204
  Transmission Date: 20250408
  Serious: No
  Sender: BAUSCH AND LOMB
  Company Number: US-BAUSCH-BL-2025-001200

PATIENT
  Sex: Female

DRUGS (1)
  1. CABTREO [Suspect]
     Active Substance: ADAPALENE\BENZOYL PEROXIDE\CLINDAMYCIN PHOSPHATE
     Indication: Accidental exposure to product
     Route: 061
     Dates: start: 202501, end: 202501

REACTIONS (4)
  - Pruritus [Not Recovered/Not Resolved]
  - Erythema [Not Recovered/Not Resolved]
  - Exposure via skin contact [Unknown]
  - Accidental exposure to product [Unknown]

NARRATIVE: CASE EVENT DATE: 20250101
